FAERS Safety Report 5664758-6 (Version None)
Quarter: 2008Q1

REPORT INFORMATION
  Report Type: 
  Country: None (occurrence: None)
  Receive Date: 20080314
  Receipt Date: 20080304
  Transmission Date: 20080703
  Serious: No
  Sender: FDA-Public Use
  Company Number: BR-BAXTER-2008BH001991

PATIENT

DRUGS (1)
  1. HUMAN ALBUMIN IMMUNO 20% [Suspect]
     Indication: DRUG USE FOR UNKNOWN INDICATION
     Route: 042
     Dates: start: 20080204, end: 20080201

REACTIONS (2)
  - DYSPNOEA [None]
  - TREMOR [None]
